FAERS Safety Report 4356112-4 (Version None)
Quarter: 2004Q2

REPORT INFORMATION
  Report Type: 
  Country: None (occurrence: None)
  Receive Date: 20040511
  Receipt Date: 20040427
  Transmission Date: 20050107
  Serious: Yes (Hospitalization)
  Sender: FDA-Public Use
  Company Number: NL-GLAXOSMITHKLINE-B0331385A

PATIENT
  Age: 75 Year
  Sex: Female

DRUGS (6)
  1. ROSIGLITAZONE MALEATE [Suspect]
     Dosage: 4MG PER DAY
  2. STRUMAZOL [Suspect]
     Dosage: 30MG PER DAY
     Dates: start: 20040317, end: 20040324
  3. METFORMIN HCL [Concomitant]
  4. EUTHYROX [Concomitant]
  5. AMARYL [Concomitant]
  6. NITROFURANTOINE [Concomitant]

REACTIONS (5)
  - CHROMATURIA [None]
  - GAMMA-GLUTAMYLTRANSFERASE INCREASED [None]
  - HEPATIC FUNCTION ABNORMAL [None]
  - JAUNDICE [None]
  - PRURITUS [None]
